FAERS Safety Report 7112268-1 (Version None)
Quarter: 2010Q4

REPORT INFORMATION
  Report Type: 
  Country: None (occurrence: None)
  Receive Date: 20101119
  Receipt Date: 20100512
  Transmission Date: 20110411
  Serious: No
  Sender: FDA-Public Use
  Company Number: A0859376A

PATIENT
  Age: 77 Year
  Sex: Male

DRUGS (10)
  1. AVODART [Suspect]
     Dosage: .5MG PER DAY
     Route: 048
     Dates: start: 20091101
  2. CLONIDINE [Concomitant]
  3. ATENOLOL [Concomitant]
  4. DIAZIDE [Concomitant]
  5. OMEPRAZOLE [Concomitant]
  6. TRAZODONE HCL [Concomitant]
  7. PROSOM [Concomitant]
  8. ALLOPURINOL [Concomitant]
  9. ULTRAM [Concomitant]
  10. COUMADIN [Concomitant]

REACTIONS (3)
  - DRUG INEFFECTIVE [None]
  - GYNAECOMASTIA [None]
  - NIPPLE PAIN [None]
